FAERS Safety Report 4690140-4 (Version None)
Quarter: 2005Q2

REPORT INFORMATION
  Report Type: 
  Country: None (occurrence: None)
  Receive Date: 20050613
  Receipt Date: 20050526
  Transmission Date: 20051028
  Serious: Yes (Hospitalization)
  Sender: FDA-Public Use
  Company Number: DSA_26373_2005

PATIENT
  Age: 36 Year
  Sex: Female

DRUGS (3)
  1. TAVOR [Suspect]
     Dosage: 3 MG ONCE PO
     Route: 048
     Dates: start: 20050426, end: 20050426
  2. ATOSIL [Suspect]
     Dosage: 1250 MG ONCE PO
     Route: 048
     Dates: start: 20050426, end: 20050426
  3. SONATA [Suspect]
     Dosage: 75 MG ONCE PO
     Route: 048
     Dates: start: 20050426, end: 20050426

REACTIONS (4)
  - AGGRESSION [None]
  - DRY MOUTH [None]
  - HALLUCINATION [None]
  - INTENTIONAL MISUSE [None]
